FAERS Safety Report 5821655-0 (Version None)
Quarter: 2008Q3

REPORT INFORMATION
  Report Type: 
  Country: None (occurrence: None)
  Receive Date: 20080724
  Receipt Date: 20080715
  Transmission Date: 20090109
  Serious: Yes (Hospitalization)
  Sender: FDA-Public Use
  Company Number: ES-SANOFI-SYNTHELABO-A01200714515

PATIENT
  Age: 84 Year
  Sex: Female

DRUGS (7)
  1. ACETYLSALICYLIC ACID SRT [Interacting]
     Indication: DRUG USE FOR UNKNOWN INDICATION
     Route: 048
     Dates: start: 20000101
  2. PREVENCOR [Interacting]
     Indication: DRUG USE FOR UNKNOWN INDICATION
     Route: 048
     Dates: start: 20000101
  3. FUROSEMIDE [Interacting]
     Indication: DRUG USE FOR UNKNOWN INDICATION
     Route: 048
     Dates: start: 20000101
  4. NITRO-DUR [Interacting]
     Indication: MYOCARDIAL ISCHAEMIA
     Route: 062
     Dates: start: 20000101, end: 20070501
  5. SOLINITRINA [Interacting]
     Indication: ACUTE CORONARY SYNDROME
     Dosage: UNK
     Route: 042
     Dates: start: 20070415, end: 20070416
  6. PLAVIX [Suspect]
     Indication: ACUTE CORONARY SYNDROME
     Route: 048
     Dates: start: 20000101
  7. TRANGOREX [Interacting]
     Indication: DRUG USE FOR UNKNOWN INDICATION
     Route: 048
     Dates: start: 20000101

REACTIONS (2)
  - ANAEMIA HAEMOLYTIC AUTOIMMUNE [None]
  - DRUG INTERACTION [None]
